FAERS Safety Report 13520793 (Version 1)
Quarter: 2017Q2

REPORT INFORMATION
  Report Type: Spontaneous
  Country: US (occurrence: US)
  Receive Date: 20170508
  Receipt Date: 20170508
  Transmission Date: 20170830
  Serious: No
  Sender: FDA-Public Use
  Company Number: US-ENDO PHARMACEUTICALS INC-2016-005222

PATIENT
  Age: 17 Year
  Sex: Female
  Weight: 50 kg

DRUGS (2)
  1. TRI-PREVIFEM TABLETS [Suspect]
     Active Substance: ETHINYL ESTRADIOL\NORGESTIMATE
     Indication: ILL-DEFINED DISORDER
  2. TRI-PREVIFEM TABLETS [Suspect]
     Active Substance: ETHINYL ESTRADIOL\NORGESTIMATE
     Indication: PSYCHOSOCIAL SUPPORT
     Dosage: 1 DF, DAILY
     Route: 048
     Dates: start: 20160419, end: 20160725

REACTIONS (4)
  - Nausea [Recovered/Resolved]
  - Off label use [Unknown]
  - Vaginal disorder [Not Recovered/Not Resolved]
  - Headache [Recovered/Resolved]

NARRATIVE: CASE EVENT DATE: 20160419
